FAERS Safety Report 9379067 (Version 3)
Quarter: 2015Q3

REPORT INFORMATION
  Report Type: Report from Study
  Country: BR (occurrence: BR)
  Receive Date: 20130702
  Receipt Date: 20150818
  Transmission Date: 20151125
  Serious: Yes (Death)
  Sender: FDA-Public Use
  Company Number: PHHY2013BR067894

PATIENT
  Sex: Male
  Weight: 50 kg

DRUGS (3)
  1. DIOVAN HCT [Suspect]
     Active Substance: HYDROCHLOROTHIAZIDE\VALSARTAN
     Indication: HYPERTENSION
     Dosage: 1 DF (160 MG VALSARTAN + 25 MG HCTZ) QD
  2. CALTREN [Concomitant]
     Active Substance: NITRENDIPINE
     Indication: CARDIAC DISORDER
     Dosage: 1 DF (20MG), DAILY
     Route: 048
  3. HEIMER [Concomitant]
     Active Substance: MEMANTINE HYDROCHLORIDE
     Indication: DEMENTIA ALZHEIMER^S TYPE
     Dosage: 2 DF, QD
     Route: 048

REACTIONS (10)
  - Hypoaesthesia [Fatal]
  - Arthritis [Not Recovered/Not Resolved]
  - Weight decreased [Fatal]
  - Pain [Fatal]
  - Muscular weakness [Fatal]
  - Respiratory disorder [Fatal]
  - Muscle atrophy [Fatal]
  - Flatulence [Recovering/Resolving]
  - Amyotrophic lateral sclerosis [Fatal]
  - Dysphagia [Fatal]

NARRATIVE: CASE EVENT DATE: 2011
